FAERS Safety Report 8592570-7 (Version None)
Quarter: 2012Q3

REPORT INFORMATION
  Report Type: 
  Country: None (occurrence: None)
  Receive Date: 20120814
  Receipt Date: 20120806
  Transmission Date: 20120928
  Serious: Yes (Hospitalization)
  Sender: FDA-Public Use
  Company Number: FR-ASTRAZENECA-2012SE56108

PATIENT
  Age: 28476 Day
  Sex: Female
  Weight: 92 kg

DRUGS (2)
  1. ACETAMINOPHEN [Suspect]
     Route: 048
     Dates: start: 20120620, end: 20120713
  2. NEXIUM [Suspect]
     Route: 048
     Dates: end: 20120723

REACTIONS (1)
  - MIXED LIVER INJURY [None]
